FAERS Safety Report 8359599-5 (Version None)
Quarter: 2012Q2

REPORT INFORMATION
  Report Type: 
  Country: None (occurrence: None)
  Receive Date: 20120514
  Receipt Date: 20120514
  Transmission Date: 20120825
  Serious: No
  Sender: FDA-Public Use
  Company Number: None

PATIENT
  Sex: Female
  Weight: 70.2 kg

DRUGS (1)
  1. XELODA [Suspect]
     Indication: BREAST CANCER
     Dosage: 500MG BID ORAL
     Route: 048
     Dates: start: 20120217

REACTIONS (4)
  - BALANCE DISORDER [None]
  - FALL [None]
  - READING DISORDER [None]
  - DISTURBANCE IN ATTENTION [None]
